FAERS Safety Report 6259590-9 (Version None)
Quarter: 2009Q3

REPORT INFORMATION
  Report Type: 
  Country: None (occurrence: None)
  Receive Date: 20090708
  Receipt Date: 20070521
  Transmission Date: 20100115
  Serious: Yes (Other)
  Sender: FDA-Public Use
  Company Number: US-ASTRAZENECA-2006UW12280

PATIENT
  Age: 15189 Day
  Sex: Male
  Weight: 127 kg

DRUGS (17)
  1. SEROQUEL [Suspect]
     Indication: DEPRESSION
     Route: 048
     Dates: start: 19980101
  2. SEROQUEL [Suspect]
     Indication: ANXIETY
     Route: 048
     Dates: start: 19980101
  3. SEROQUEL [Suspect]
     Indication: PARANOIA
     Route: 048
     Dates: start: 19980101
  4. SEROQUEL [Suspect]
     Route: 048
  5. SEROQUEL [Suspect]
     Route: 048
  6. SEROQUEL [Suspect]
     Route: 048
  7. ZYPREXA [Suspect]
     Dosage: 5 - 20 MG
     Dates: start: 20001229
  8. ZYPREXA [Suspect]
     Dates: start: 20010101
  9. RISPERDAL [Concomitant]
     Dates: start: 20031009
  10. RISPERDAL [Concomitant]
  11. ENALAPRIL [Concomitant]
     Dates: start: 20031009
  12. LITHIUM [Concomitant]
     Dates: start: 20031009
  13. IMIPRAMINE [Concomitant]
     Dates: start: 20031009
  14. CLONAZEPAM [Concomitant]
     Dates: start: 20031009
  15. RANITIDINE [Concomitant]
     Dates: start: 20031009
  16. GLYBURIDE [Concomitant]
     Dates: start: 20031009
  17. GLUCOPHAGE [Concomitant]
     Dates: start: 20031009

REACTIONS (10)
  - BLOOD CHOLESTEROL INCREASED [None]
  - BLOOD PRESSURE [None]
  - DIABETES MELLITUS [None]
  - DIABETES MELLITUS INADEQUATE CONTROL [None]
  - DIABETIC NEUROPATHY [None]
  - HEART RATE [None]
  - HYPERGLYCAEMIA [None]
  - NEUROPATHY PERIPHERAL [None]
  - PERIODONTITIS [None]
  - TYPE 2 DIABETES MELLITUS [None]
